FAERS Safety Report 17258717 (Version 1)
Quarter: 2020Q1

REPORT INFORMATION
  Report Type: Spontaneous
  Country: US (occurrence: US)
  Receive Date: 20200110
  Receipt Date: 20200110
  Transmission Date: 20200409
  Serious: Yes (Other)
  Sender: FDA-Public Use
  Company Number: US-HIKMA PHARMACEUTICALS USA INC.-US-H14001-20-00002

PATIENT
  Age: 69 Year
  Sex: Female

DRUGS (5)
  1. VENLAFAXINE [Suspect]
     Active Substance: VENLAFAXINE HYDROCHLORIDE
     Indication: DEPRESSION
     Route: 048
     Dates: start: 2005, end: 20190404
  2. VENLAFAXINE ZYDUS [Suspect]
     Active Substance: VENLAFAXINE HYDROCHLORIDE
     Indication: DEPRESSION
     Route: 048
     Dates: start: 20190404, end: 201905
  3. KLONOPIN [Concomitant]
     Active Substance: CLONAZEPAM
     Indication: ANXIETY
     Route: 048
  4. QUETIAPINE. [Suspect]
     Active Substance: QUETIAPINE
     Indication: INSOMNIA
     Route: 048
  5. VENLAFAXINE [Suspect]
     Active Substance: VENLAFAXINE HYDROCHLORIDE
     Route: 065
     Dates: start: 2019

REACTIONS (7)
  - Nightmare [Unknown]
  - Hallucination, visual [Unknown]
  - Off label use [Unknown]
  - Crying [Recovered/Resolved]
  - Neuralgia [Recovered/Resolved]
  - Pain in extremity [Recovered/Resolved]
  - Loss of control of legs [Recovered/Resolved]

NARRATIVE: CASE EVENT DATE: 201904
